FAERS Safety Report 17892325 (Version 1)
Quarter: 2020Q2

REPORT INFORMATION
  Report Type: Spontaneous
  Country: US (occurrence: US)
  Receive Date: 20200612
  Receipt Date: 20200612
  Transmission Date: 20200714
  Serious: No
  Sender: FDA-Public Use
  Company Number: US-BIOHAVEN PHARMACEUTICALS-2020BHV00043

PATIENT
  Age: 76 Year
  Sex: Female
  Weight: 68.03 kg

DRUGS (16)
  1. NURTEC ODT [Suspect]
     Active Substance: RIMEGEPANT SULFATE
     Indication: MIGRAINE
     Dosage: 75 MG, ONCE
     Route: 060
     Dates: start: 20200512
  2. TYLENOL [Concomitant]
     Active Substance: ACETAMINOPHEN
     Dosage: 500 MG, 2X/DAY
  3. ASPIRIN. [Concomitant]
     Active Substance: ASPIRIN
     Dosage: 81 MG, 1X/DAY
  4. ROSUVASTATIN. [Concomitant]
     Active Substance: ROSUVASTATIN
     Dosage: 5 MG, 1X/DAY
  5. FOSAMAX [Concomitant]
     Active Substance: ALENDRONATE SODIUM
     Dosage: 70 MG, 1X/WEEK
  6. COQ10 [Concomitant]
     Active Substance: UBIDECARENONE
     Dosage: 50 MG, 1X/DAY
  7. MAGNESIUM [Concomitant]
     Active Substance: MAGNESIUM
     Dosage: 400 MG, 1X/DAY
  8. CALCIUM CITRATE W/ VITAMIN D [Concomitant]
     Dosage: 2 TABLETS, 1X/DAY
  9. AIMOVIG [Concomitant]
     Active Substance: ERENUMAB-AOOE
     Dosage: 140 MG, 1X/MONTH
  10. VENLAFAXINE [Concomitant]
     Active Substance: VENLAFAXINE HYDROCHLORIDE
     Dosage: 150 MG, 1X/DAY
  11. BUPROPION. [Concomitant]
     Active Substance: BUPROPION
     Dosage: 300 MG, 1X/DAY
  12. OSTEO BI FLEX [Concomitant]
     Dosage: 2 TABLETS, 1X/DAY
  13. MULTIVITAMIN FOR WOMEN OVER 50 [Concomitant]
     Dosage: UNK, 1X/DAY
  14. METAMUCIL [Concomitant]
     Active Substance: PLANTAGO SEED
     Dosage: 2 TSP, 1X/DAY
  15. CRANBERRY EXTRACT PILLS [Concomitant]
     Dosage: 500 MG, 1X/DAY
  16. MIRALAX [Concomitant]
     Active Substance: POLYETHYLENE GLYCOL 3350
     Dosage: 17 G, 1X/DAY

REACTIONS (1)
  - Therapeutic product effect delayed [Recovered/Resolved]

NARRATIVE: CASE EVENT DATE: 20200512
